FAERS Safety Report 7489029-7 (Version None)
Quarter: 2011Q2

REPORT INFORMATION
  Report Type: 
  Country: None (occurrence: None)
  Receive Date: 20110518
  Receipt Date: 20110513
  Transmission Date: 20111010
  Serious: Yes (Death, Hospitalization, Other)
  Sender: FDA-Public Use
  Company Number: FR-PFIZER INC-2011103165

PATIENT
  Age: 65 Year
  Sex: Male

DRUGS (2)
  1. PREVISCAN [Suspect]
     Dosage: 1 DF, 1X/DAY
     Route: 048
     Dates: start: 20100701
  2. CELEBREX [Suspect]
     Indication: MUSCULOSKELETAL PAIN
     Dosage: 1 DF, UNK
     Route: 048
     Dates: end: 20110121

REACTIONS (3)
  - GASTROINTESTINAL HAEMORRHAGE [None]
  - CONVULSION [None]
  - GASTRIC ULCER [None]
